FAERS Safety Report 10219052 (Version 4)
Quarter: 2018Q1

REPORT INFORMATION
  Report Type: Spontaneous
  Country: US (occurrence: US)
  Receive Date: 20140605
  Receipt Date: 20180221
  Transmission Date: 20180508
  Serious: Yes (Other)
  Sender: FDA-Public Use
  Company Number: US-ASTRAZENECA-2014SE36426

PATIENT
  Age: 62 Year
  Sex: Female

DRUGS (2)
  1. ZOMIG [Suspect]
     Active Substance: ZOLMITRIPTAN
     Indication: MIGRAINE
     Dosage: 5.0MG AS REQUIRED
     Route: 048
     Dates: start: 20111102
  2. ZOMIG [Suspect]
     Active Substance: ZOLMITRIPTAN
     Indication: MIGRAINE
     Dosage: 5.0MG UNKNOWN
     Route: 048
     Dates: start: 201109

REACTIONS (15)
  - Drug dose omission [Unknown]
  - Nausea [Unknown]
  - Intentional product misuse [Unknown]
  - Product quality issue [Unknown]
  - Cardiac valve disease [Unknown]
  - Vomiting [Unknown]
  - Malaise [Unknown]
  - Limb injury [Unknown]
  - Nasal injury [Unknown]
  - Drug ineffective [Unknown]
  - Migraine [Unknown]
  - Joint injury [Unknown]
  - Nasopharyngitis [Unknown]
  - Stress [Unknown]
  - Toothache [Unknown]
